FAERS Safety Report 12943637 (Version 1)
Quarter: 2016Q4

REPORT INFORMATION
  Report Type: Spontaneous
  Country: US (occurrence: US)
  Receive Date: 20161115
  Receipt Date: 20161115
  Transmission Date: 20170207
  Serious: No
  Sender: FDA-Public Use
  Company Number: US-ROCHE-1642936

PATIENT
  Sex: Female

DRUGS (1)
  1. TAMIFLU [Suspect]
     Active Substance: OSELTAMIVIR PHOSPHATE
     Indication: INFLUENZA LIKE ILLNESS
     Route: 048
     Dates: start: 20151001, end: 20151002

REACTIONS (3)
  - Headache [Recovered/Resolved]
  - Myalgia [Recovered/Resolved]
  - Pain [Recovered/Resolved]
